FAERS Safety Report 21254661 (Version 1)
Quarter: 2022Q3

REPORT INFORMATION
  Report Type: Spontaneous
  Country: US (occurrence: None)
  Receive Date: 20220824
  Receipt Date: 20220824
  Transmission Date: 20221027
  Serious: Yes (Other)
  Sender: FDA-Public Use
  Company Number: None

PATIENT
  Age: 78 Year
  Sex: Female
  Weight: 87.75 kg

DRUGS (6)
  1. JANUVIA [Suspect]
     Active Substance: SITAGLIPTIN PHOSPHATE
     Indication: Type 2 diabetes mellitus
     Dosage: OTHER QUANTITY : 1 TABLET(S);?FREQUENCY : DAILY;?
     Route: 048
  2. Trulicity (replacing Januvia) [Concomitant]
  3. LISINOPRIL [Concomitant]
     Active Substance: LISINOPRIL
  4. AMLODIPINE [Concomitant]
     Active Substance: AMLODIPINE BESYLATE
  5. ROSUVASTATIN [Concomitant]
     Active Substance: ROSUVASTATIN
  6. SINGULAIR [Concomitant]
     Active Substance: MONTELUKAST SODIUM

REACTIONS (2)
  - Renal impairment [None]
  - Therapy cessation [None]

NARRATIVE: CASE EVENT DATE: 20220705
